FAERS Safety Report 16399099 (Version 1)
Quarter: 2019Q2

REPORT INFORMATION
  Report Type: Spontaneous
  Country: US (occurrence: US)
  Receive Date: 20190501
  Receipt Date: 20190501
  Transmission Date: 20190711
  Serious: Yes (Other)
  Sender: FDA-Public Use
  Company Number: None

PATIENT
  Age: 58 Year
  Sex: Male
  Weight: 132 kg

DRUGS (1)
  1. GENERIC VIAGRA SILDENAFIL CITRATE [Suspect]
     Active Substance: SILDENAFIL CITRATE
     Indication: ANDROGEN INSENSITIVITY SYNDROME
     Dosage: ?          OTHER FREQUENCY:2 Q W;?
     Route: 048

REACTIONS (1)
  - Headache [None]
